FAERS Safety Report 8379385-X (Version None)
Quarter: 2012Q2

REPORT INFORMATION
  Report Type: 
  Country: None (occurrence: None)
  Receive Date: 20120523
  Receipt Date: 20120517
  Transmission Date: 20120825
  Serious: Yes (Hospitalization)
  Sender: FDA-Public Use
  Company Number: US-BAYER-201022662NA

PATIENT
  Age: 22 Year
  Sex: Female
  Weight: 114.74 kg

DRUGS (12)
  1. AMOXICILLIN [Concomitant]
     Dosage: 500 MG, UNK
     Route: 048
     Dates: start: 20080113
  2. MERIDIA [Concomitant]
     Indication: WEIGHT DECREASED
     Dosage: 15 MG, UNK
     Route: 048
     Dates: start: 20071010
  3. PANTOPRAZOLE [Concomitant]
     Dosage: 40 MG, UNK
     Route: 048
     Dates: start: 20080606
  4. PROMETHAZINE [Concomitant]
     Dosage: 25 MG, UNK
     Route: 048
     Dates: start: 20080415
  5. PROTONIX [Concomitant]
     Dosage: 40 MG, UNK
     Route: 048
  6. HYDROCODONE BITARTRATE AND ACETAMINOPHEN [Concomitant]
     Dosage: 7.5MG/500MG
     Route: 048
     Dates: start: 20080124
  7. YAZ [Suspect]
     Indication: CONTRACEPTION
     Dosage: UNK UNK, QD
     Route: 048
     Dates: start: 20070101, end: 20080501
  8. PREMPRIN [Concomitant]
     Indication: PRODUCT USED FOR UNKNOWN INDICATION
  9. CITALOPRAM HYDROBROMIDE [Concomitant]
     Indication: DEPRESSION
     Dosage: 40 MG, UNK
     Route: 048
     Dates: start: 20070828
  10. OXYCODONE HCL AND ACETAMINOPHEN [Concomitant]
     Dosage: 7.5 MG/ 500MG
     Route: 048
     Dates: start: 20080128
  11. PROPOFOL [Concomitant]
     Route: 042
  12. YAZ [Suspect]
     Indication: PREMENSTRUAL SYNDROME

REACTIONS (2)
  - DEEP VEIN THROMBOSIS [None]
  - PULMONARY EMBOLISM [None]
